FAERS Safety Report 7998957-5 (Version None)
Quarter: 2011Q4

REPORT INFORMATION
  Report Type: 
  Country: None (occurrence: None)
  Receive Date: 20111221
  Receipt Date: 20111219
  Transmission Date: 20120403
  Serious: Yes (Other)
  Sender: FDA-Public Use
  Company Number: CHPA2011US018264

PATIENT
  Age: 63 Year
  Sex: Female

DRUGS (4)
  1. FOSAMAX [Concomitant]
     Indication: OSTEOPOROSIS
     Dosage: UNK DF, UNK
     Route: 048
  2. VITAMINS NOS [Concomitant]
     Indication: SUPPLEMENTATION THERAPY
     Dosage: 1 DF, QD
     Route: 048
  3. LEVOXYL [Concomitant]
     Indication: HYPERTHYROIDISM
     Dosage: UNK DF, UNK
     Route: 048
  4. TRANSDERM SCOP [Suspect]
     Indication: MOTION SICKNESS
     Dosage: 1 DF, Q72H
     Route: 062
     Dates: start: 20111204, end: 20111212

REACTIONS (4)
  - NAUSEA [None]
  - VOMITING [None]
  - EPIGASTRIC DISCOMFORT [None]
  - DIZZINESS [None]
